FAERS Safety Report 7395368-0 (Version None)
Quarter: 2011Q2

REPORT INFORMATION
  Report Type: 
  Country: None (occurrence: None)
  Receive Date: 20110405
  Receipt Date: 20110330
  Transmission Date: 20111010
  Serious: Yes (Other)
  Sender: FDA-Public Use
  Company Number: DE-ABBOTT-11P-062-0715716-00

PATIENT
  Sex: Female

DRUGS (4)
  1. HUMIRA [Suspect]
     Indication: PSORIATIC ARTHROPATHY
     Dates: start: 20100301
  2. HUMIRA [Suspect]
     Indication: PSORIASIS
  3. METOPROLOL SUCCINATE [Concomitant]
     Indication: HYPERTENSION
  4. DOXACOR [Concomitant]
     Indication: HYPERTENSION

REACTIONS (2)
  - MYELODYSPLASTIC SYNDROME [None]
  - LIVER FUNCTION TEST ABNORMAL [None]
